FAERS Safety Report 4922825-6 (Version None)
Quarter: 2006Q1

REPORT INFORMATION
  Report Type: 
  Country: None (occurrence: None)
  Receive Date: 20060224
  Receipt Date: 20050325
  Transmission Date: 20060701
  Serious: Yes (Death)
  Sender: FDA-Public Use
  Company Number: US-MERCK-0503USA04994

PATIENT
  Age: 61 Year
  Sex: Male
  Weight: 96 kg

DRUGS (6)
  1. VIOXX [Suspect]
     Indication: BACK PAIN
     Route: 048
     Dates: start: 20040204, end: 20040413
  2. MOTRIN [Concomitant]
     Route: 065
  3. DARVOCET-N 50 [Concomitant]
     Route: 065
  4. ASPIRIN [Concomitant]
     Route: 065
  5. FLEXERIL [Concomitant]
     Route: 065
  6. PREVACID [Concomitant]
     Route: 065

REACTIONS (4)
  - ARTERIOSCLEROSIS [None]
  - CARDIAC ARREST [None]
  - LOSS OF CONSCIOUSNESS [None]
  - VENTRICULAR FIBRILLATION [None]
